FAERS Safety Report 24569865 (Version 1)
Quarter: 2024Q4

REPORT INFORMATION
  Report Type: Spontaneous
  Country: US (occurrence: US)
  Receive Date: 20241031
  Receipt Date: 20241031
  Transmission Date: 20250115
  Serious: Yes (Hospitalization)
  Sender: AMGEN
  Company Number: US-AMGEN-USASP2024212654

PATIENT
  Sex: Male
  Weight: 72.1 kg

DRUGS (3)
  1. RIABNI [Suspect]
     Active Substance: RITUXIMAB-ARRX
     Indication: Non-Hodgkin^s lymphoma
     Dosage: UNK (500 MG X 1 VIAL)
     Route: 065
  2. RIABNI [Suspect]
     Active Substance: RITUXIMAB-ARRX
     Dosage: UNK (100 MG X 2 VIAL)
     Route: 065
  3. METHOTREXATE [Concomitant]
     Active Substance: METHOTREXATE

REACTIONS (1)
  - Overdose [Unknown]
